FAERS Safety Report 8908644 (Version 2)
Quarter: 2013Q2

REPORT INFORMATION
  Report Type: Report from Study
  Country: JP (occurrence: JP)
  Receive Date: 20121114
  Receipt Date: 20130515
  Transmission Date: 20140414
  Serious: Yes (Other)
  Sender: FDA-Public Use
  Company Number: JP-VERTEX PHARMACEUTICAL INC.-AE-2012-009739

PATIENT
  Age: 66 Year
  Sex: Male

DRUGS (11)
  1. VX-950 (TELAPREVIR) [Suspect]
     Indication: CHRONIC HEPATITIS C
     Dosage: 2250 MG, QD
     Route: 048
     Dates: start: 20120621, end: 20120624
  2. REBETOL [Suspect]
     Indication: CHRONIC HEPATITIS C
     Dosage: 800 MG, QD
     Route: 048
     Dates: start: 20120621, end: 20120624
  3. PEGINTRON [Suspect]
     Indication: CHRONIC HEPATITIS C
     Dosage: 1.5 ?G/KG, QW
     Route: 058
     Dates: start: 20120621, end: 20120624
  4. URSO [Concomitant]
     Dosage: 600 MG, QD
     Route: 048
  5. HYPOCA [Concomitant]
     Dosage: 10 MG, QD
     Route: 048
  6. WARFARIN [Concomitant]
     Dosage: 3 MG, QD
     Route: 048
  7. MAINTATE [Concomitant]
     Dosage: 2.5 MG, QD
     Route: 048
  8. LOXOPROFEN SODIUM [Concomitant]
     Dosage: 180 MG, QD
     Route: 048
     Dates: start: 20120621, end: 20120625
  9. MUCOSTA [Concomitant]
     Dosage: 300 MG, QD
     Route: 048
     Dates: start: 20120621, end: 20120627
  10. NIZORAL [Concomitant]
     Dosage: Q.S./DAY
     Route: 061
     Dates: start: 20120626
  11. NEW LECICARBON [Concomitant]
     Dosage: 2.6 G, QD
     Route: 054
     Dates: start: 20120627, end: 20120627

REACTIONS (2)
  - Renal failure acute [Recovered/Resolved]
  - Blood uric acid increased [Recovered/Resolved]
